FAERS Safety Report 5847765-X (Version None)
Quarter: 2008Q3

REPORT INFORMATION
  Report Type: 
  Country: None (occurrence: None)
  Receive Date: 20080815
  Receipt Date: 20080815
  Transmission Date: 20090109
  Serious: Yes (Hospitalization)
  Sender: FDA-Public Use
  Company Number: None

PATIENT
  Sex: Female
  Weight: 113.7 kg

DRUGS (6)
  1. CYCLOPHOSPHAMIDE [Suspect]
     Dosage: 4320 MG
     Dates: end: 20080720
  2. DOXORUBICIN HYDROCHLORIDE [Suspect]
     Dosage: 108 MG
     Dates: end: 20080720
  3. METHOTREXATE SODIUM [Suspect]
     Dosage: 325 MG
     Dates: end: 20080719
  4. PREDNISONE TAB [Suspect]
     Dosage: 1075 MG
     Dates: end: 20080725
  5. RITUXIMAB (MOAB C2B8 ANTI CD20, CHIMERIC) [Suspect]
     Dosage: 810 MG
     Dates: end: 20080718
  6. VINCRISTINE SULFATE [Suspect]
     Dosage: 2 MG
     Dates: end: 20080720

REACTIONS (16)
  - ANAEMIA [None]
  - BONE MARROW FAILURE [None]
  - DIARRHOEA [None]
  - ERYTHEMA [None]
  - FEBRILE NEUTROPENIA [None]
  - GRAFT VERSUS HOST DISEASE [None]
  - MUCOSAL INFLAMMATION [None]
  - NAUSEA [None]
  - OEDEMA PERIPHERAL [None]
  - ORAL PAIN [None]
  - OROPHARYNGEAL PAIN [None]
  - PETECHIAE [None]
  - PRODUCTIVE COUGH [None]
  - SEPTIC SHOCK [None]
  - SKIN EXFOLIATION [None]
  - WHEEZING [None]
